FAERS Safety Report 12695142 (Version 1)
Quarter: 2016Q3

REPORT INFORMATION
  Report Type: Report from Study
  Country: VE (occurrence: VE)
  Receive Date: 20160829
  Receipt Date: 20160829
  Transmission Date: 20161109
  Serious: Yes (Other)
  Sender: FDA-Public Use
  Company Number: PHHY2015VE104178

PATIENT
  Sex: Female

DRUGS (11)
  1. SANDOSTATIN LAR DEPOT [Suspect]
     Active Substance: OCTREOTIDE ACETATE
     Indication: NEUROENDOCRINE TUMOUR
     Dosage: 20 MG, QMO
     Route: 065
     Dates: start: 201409
  2. SANDOSTATIN LAR DEPOT [Suspect]
     Active Substance: OCTREOTIDE ACETATE
     Indication: HEPATIC NEOPLASM
     Dosage: 40 MG, QMO
     Route: 065
  3. COZAAR [Concomitant]
     Active Substance: LOSARTAN POTASSIUM
     Indication: PRODUCT USED FOR UNKNOWN INDICATION
     Dosage: 100 MG, QD
     Route: 065
  4. ALVOTINOX [Concomitant]
     Indication: HYPERTENSION
     Dosage: 100 MG, QD
     Route: 065
  5. PANTOPRAZOLE [Concomitant]
     Active Substance: PANTOPRAZOLE SODIUM
     Indication: PRODUCT USED FOR UNKNOWN INDICATION
     Dosage: 40 MG, QD
     Route: 065
  6. COSART [Concomitant]
     Indication: HYPERTENSION
     Dosage: 150 MG, QD
     Route: 065
  7. ASAPROL [Concomitant]
     Active Substance: ASPIRIN
     Indication: PRODUCT USED FOR UNKNOWN INDICATION
     Dosage: UNK UNK, QD
     Route: 065
  8. DAFLON [Concomitant]
     Active Substance: DIOSMIN\HESPERIDIN
     Indication: PAIN
     Dosage: 500 MG, UNK
     Route: 065
  9. LOSARTAN POTASSIUM. [Concomitant]
     Active Substance: LOSARTAN POTASSIUM
     Indication: HYPERTENSION
     Dosage: 100 MG, QD
     Route: 065
  10. CARNITINE [Concomitant]
     Active Substance: CARNITINE
     Indication: WEIGHT CONTROL
     Dosage: 500 MG, QD
     Route: 065
  11. ATACOR [Concomitant]
     Indication: PRODUCT USED FOR UNKNOWN INDICATION
     Route: 065

REACTIONS (15)
  - Femur fracture [Recovering/Resolving]
  - Fall [Recovered/Resolved]
  - Peripheral swelling [Recovering/Resolving]
  - Dry throat [Recovering/Resolving]
  - Hyperhidrosis [Unknown]
  - General physical health deterioration [Recovering/Resolving]
  - Weight decreased [Recovering/Resolving]
  - Nervousness [Recovering/Resolving]
  - Inflammation [Recovering/Resolving]
  - Pain in extremity [Not Recovered/Not Resolved]
  - Dysstasia [Recovering/Resolving]
  - Depression [Recovering/Resolving]
  - Arthropathy [Recovering/Resolving]
  - Lip dry [Recovering/Resolving]
  - Diarrhoea [Recovering/Resolving]
